FAERS Safety Report 13950252 (Version 2)
Quarter: 2017Q4

REPORT INFORMATION
  Report Type: Spontaneous
  Country: US (occurrence: US)
  Receive Date: 20170908
  Receipt Date: 20171005
  Transmission Date: 20180320
  Serious: Yes (Other)
  Sender: FDA-Public Use
  Company Number: US-BAYER-2017-169085

PATIENT
  Sex: Female

DRUGS (1)
  1. MIRENA [Suspect]
     Active Substance: LEVONORGESTREL
     Indication: PRODUCT USED FOR UNKNOWN INDICATION
     Dosage: 20 MCG/24HR, CONT
     Route: 015
     Dates: start: 201409, end: 201706

REACTIONS (12)
  - Abdominal pain lower [Not Recovered/Not Resolved]
  - Muscle spasms [None]
  - Depression [None]
  - Anxiety [None]
  - Breast fibroma [None]
  - Feeling abnormal [None]
  - Skin mass [None]
  - Muscular weakness [None]
  - Back pain [Not Recovered/Not Resolved]
  - Chemical poisoning [Unknown]
  - Nausea [Not Recovered/Not Resolved]
  - Fatigue [None]

NARRATIVE: CASE EVENT DATE: 2015
